FAERS Safety Report 13462609 (Version 1)
Quarter: 2017Q2

REPORT INFORMATION
  Report Type: Spontaneous
  Country: GB (occurrence: GB)
  Receive Date: 20170420
  Receipt Date: 20170420
  Transmission Date: 20170830
  Serious: Yes (Other)
  Sender: FDA-Public Use
  Company Number: GB-BAYER-2017-069447

PATIENT
  Age: 67 Year
  Sex: Female
  Weight: 92.52 kg

DRUGS (4)
  1. ALPHA LIPOIC ACID [Concomitant]
     Active Substance: .ALPHA.-LIPOIC ACID
     Dosage: UNK
  2. MAGNESIUM [MAGNESIUM] [Concomitant]
     Dosage: UNK
  3. FRUCTOSE [Concomitant]
     Active Substance: FRUCTOSE
     Dosage: UNK
  4. CIPROFLOXACIN. [Suspect]
     Active Substance: CIPROFLOXACIN
     Indication: DIVERTICULITIS
     Dosage: UNK
     Route: 048
     Dates: start: 2014, end: 2015

REACTIONS (9)
  - Inflammation [Recovering/Resolving]
  - Tendon pain [Recovering/Resolving]
  - Malaise [Recovering/Resolving]
  - Skin burning sensation [Recovering/Resolving]
  - Tendon injury [Unknown]
  - Muscle twitching [Unknown]
  - Fatigue [Recovering/Resolving]
  - Back pain [Recovering/Resolving]
  - Pain [Unknown]

NARRATIVE: CASE EVENT DATE: 2014
